APPROVED DRUG PRODUCT: TAVABOROLE
Active Ingredient: TAVABOROLE
Strength: 5%
Dosage Form/Route: SOLUTION;TOPICAL
Application: A212188 | Product #001 | TE Code: AB
Applicant: ALEMBIC PHARMACEUTICALS LTD
Approved: Oct 21, 2020 | RLD: No | RS: No | Type: RX